FAERS Safety Report 14527764 (Version 2)
Quarter: 2018Q1

REPORT INFORMATION
  Report Type: Report from Study
  Country: US (occurrence: US)
  Receive Date: 20180213
  Receipt Date: 20180327
  Transmission Date: 20180509
  Serious: Yes (Hospitalization)
  Sender: FDA-Public Use
  Company Number: US-ACTELION-A-NJ2018-167258

PATIENT
  Age: 6 Month
  Sex: Male

DRUGS (11)
  1. SODIUM CHLORIDE. [Concomitant]
     Active Substance: SODIUM CHLORIDE
  2. TRACLEER [Suspect]
     Active Substance: BOSENTAN
     Indication: PULMONARY HYPERTENSION
     Dosage: 16 MG, QD
     Route: 048
     Dates: start: 20180113
  3. RANITIDINE. [Concomitant]
     Active Substance: RANITIDINE
  4. OMEPRA [Concomitant]
  5. D-VI-SOL [Concomitant]
  6. DIURIL [Concomitant]
     Active Substance: CHLOROTHIAZIDE
  7. IBUPROFEN. [Concomitant]
     Active Substance: IBUPROFEN
  8. NYSTATIN. [Concomitant]
     Active Substance: NYSTATIN
  9. FUROSEMIDE. [Concomitant]
     Active Substance: FUROSEMIDE
  10. MELATONIN [Concomitant]
     Active Substance: MELATONIN
  11. POLY-VI-SOL [Concomitant]
     Active Substance: VITAMINS

REACTIONS (3)
  - Gastrostomy [Unknown]
  - Dyspnoea [Recovered/Resolved]
  - Vomiting [Unknown]

NARRATIVE: CASE EVENT DATE: 201802
